FAERS Safety Report 4699712-4 (Version None)
Quarter: 2005Q2

REPORT INFORMATION
  Report Type: 
  Country: None (occurrence: None)
  Receive Date: 20050623
  Receipt Date: 20050530
  Transmission Date: 20051028
  Serious: Yes (Other)
  Sender: FDA-Public Use
  Company Number: 2005-06-0002

PATIENT
  Age: 37 Year
  Sex: Female

DRUGS (1)
  1. CLARITIN [Suspect]
     Dosage: ORAL
     Route: 048
     Dates: start: 20021201, end: 20030301

REACTIONS (1)
  - LIVER DISORDER [None]
